FAERS Safety Report 10592347 (Version 1)
Quarter: 2014Q4

REPORT INFORMATION
  Report Type: Spontaneous
  Country: KR (occurrence: None)
  Receive Date: 20141117
  Receipt Date: 20141117
  Transmission Date: 20150529
  Serious: Yes (Other)
  Sender: FDA-Public Use
  Company Number: KR2014GSK015351

PATIENT
  Sex: Male

DRUGS (3)
  1. LAMIVUDINE. [Suspect]
     Active Substance: LAMIVUDINE
     Indication: CHRONIC HEPATITIS B
  2. ENTECAVIR. [Suspect]
     Active Substance: ENTECAVIR
  3. ADEFOVIR [Suspect]
     Active Substance: ADEFOVIR

REACTIONS (3)
  - Genotype drug resistance test [None]
  - Drug resistance [None]
  - Viral infection [None]
